FAERS Safety Report 5159245-8 (Version None)
Quarter: 2006Q4

REPORT INFORMATION
  Report Type: 
  Country: None (occurrence: None)
  Receive Date: 20061120
  Receipt Date: 20061102
  Transmission Date: 20070319
  Serious: Yes (Hospitalization)
  Sender: FDA-Public Use
  Company Number: 216744

PATIENT
  Age: 60 Year
  Sex: Female
  Weight: 81.5 kg

DRUGS (1)
  1. AVASTIN [Suspect]
     Indication: COLORECTAL CANCER METASTATIC
     Dosage: 435 MG, INTRAVENOUS
     Route: 042
     Dates: start: 20050701, end: 20050725

REACTIONS (3)
  - ABDOMINAL PAIN [None]
  - GASTRITIS HAEMORRHAGIC [None]
  - PRETERNATURAL ANUS [None]
